FAERS Safety Report 8741661 (Version 2)
Quarter: 2013Q4

REPORT INFORMATION
  Report Type: Report from Study
  Country: JP (occurrence: JP)
  Receive Date: 20120824
  Receipt Date: 20131031
  Transmission Date: 20140711
  Serious: Yes (Life-Threatening)
  Sender: FDA-Public Use
  Company Number: JP-009507513-1208JPN009140

PATIENT
  Age: 48 Year
  Sex: Male

DRUGS (3)
  1. ISENTRESS TABLETS 400MG [Suspect]
     Indication: HIV INFECTION
     Dosage: 800 MG, QD
     Route: 048
     Dates: start: 20101020, end: 20101027
  2. ISENTRESS TABLETS 400MG [Suspect]
     Dosage: 800 MG, QD
     Route: 048
     Dates: start: 20101110
  3. TRUVADA [Suspect]
     Indication: HIV INFECTION
     Dosage: 1 DF, QD
     Route: 048
     Dates: start: 20101020, end: 20101027

REACTIONS (2)
  - Renal tubular necrosis [Recovered/Resolved]
  - Sepsis [Recovered/Resolved]
